FAERS Safety Report 18763068 (Version 1)
Quarter: 2021Q1

REPORT INFORMATION
  Report Type: Spontaneous
  Country: US (occurrence: US)
  Receive Date: 20210120
  Receipt Date: 20210120
  Transmission Date: 20210419
  Serious: No
  Sender: FDA-Public Use
  Company Number: US-009507513-2101USA007614

PATIENT
  Sex: Female

DRUGS (1)
  1. NEXPLANON [Suspect]
     Active Substance: ETONOGESTREL
     Indication: CONTRACEPTIVE IMPLANT
     Dosage: 1 IMPLANT (68 MILLIGRAM), DAILY (FREQUENCY REPORTED AS DAILY)
     Route: 059
     Dates: start: 20200724, end: 20210112

REACTIONS (2)
  - Drug ineffective [Unknown]
  - Menorrhagia [Unknown]
